FAERS Safety Report 15066576 (Version 16)
Quarter: 2019Q1

REPORT INFORMATION
  Report Type: Spontaneous
  Country: FR (occurrence: FR)
  Receive Date: 20180626
  Receipt Date: 20190227
  Transmission Date: 20190417
  Serious: Yes (Other)
  Sender: FDA-Public Use
  Company Number: FR-BAUSCH-BL-2018-017471

PATIENT
  Age: 1 Day
  Sex: Male
  Weight: 1.89 kg

DRUGS (41)
  1. AMOXICILLIN. [Suspect]
     Active Substance: AMOXICILLIN
     Dosage: DURATION: 1 YEAR 11 DAYS
     Route: 064
     Dates: start: 20170804, end: 20170914
  2. GLICLAZIDE [Suspect]
     Active Substance: GLICLAZIDE
     Indication: TYPE 2 DIABETES MELLITUS
     Dosage: DURATION: 4 MONTHS 26 DAYS
     Route: 064
     Dates: start: 20160930, end: 20170224
  3. LOXEN L P [Suspect]
     Active Substance: NICARDIPINE HYDROCHLORIDE
     Indication: HYPERTENSION
     Route: 064
     Dates: start: 20170313, end: 20170405
  4. METFORMIN HYDROCHLORIDE. [Suspect]
     Active Substance: METFORMIN HYDROCHLORIDE
     Indication: TYPE 2 DIABETES MELLITUS
     Dosage: DURATION: 4 MONTHS 26 DAYS
     Route: 064
     Dates: start: 20160930, end: 20170224
  5. LEVEMIR [Suspect]
     Active Substance: INSULIN DETEMIR
     Indication: TYPE 2 DIABETES MELLITUS
     Dosage: DURATION: 4 MONTHS 26 DAYS
     Route: 064
     Dates: start: 20160930, end: 20170224
  6. NICOPATCH [Suspect]
     Active Substance: NICOTINE
     Indication: EX-TOBACCO USER
     Dosage: DURATION:2 MONTHS 23 DAYS
     Route: 064
     Dates: start: 20170224, end: 20170516
  7. FOLIC ACID. [Suspect]
     Active Substance: FOLIC ACID
     Route: 064
     Dates: start: 20170224, end: 20170313
  8. FUROSEMIDE. [Suspect]
     Active Substance: FUROSEMIDE
     Route: 064
  9. FOLINIC ACID [Suspect]
     Active Substance: LEUCOVORIN
     Indication: NORMOCHROMIC NORMOCYTIC ANAEMIA
     Route: 064
  10. INSULIN [Suspect]
     Active Substance: INSULIN NOS
     Indication: TYPE 2 DIABETES MELLITUS
     Dosage: DURATION: 1 YEAR 1 MONTH 26 DAYS
     Route: 064
     Dates: start: 20161230, end: 20180224
  11. METFORMIN HYDROCHLORIDE. [Suspect]
     Active Substance: METFORMIN HYDROCHLORIDE
     Route: 064
     Dates: start: 20170804
  12. HUMALOG [Suspect]
     Active Substance: INSULIN LISPRO
     Route: 064
     Dates: start: 20170224, end: 20170224
  13. AMOXICILLIN. [Suspect]
     Active Substance: AMOXICILLIN
     Indication: PRODUCT USED FOR UNKNOWN INDICATION
     Dosage: DURATION: 1 YEAR 8 DAYS
     Route: 064
     Dates: start: 20170804, end: 20180811
  14. LANTUS [Suspect]
     Active Substance: INSULIN GLARGINE
     Indication: TYPE 2 DIABETES MELLITUS
     Dosage: DURATION: 6 MONTHS 22 DAYS
     Route: 064
     Dates: start: 20170224, end: 20170914
  15. TARDYFERON [Suspect]
     Active Substance: FERROUS SULFATE
     Route: 064
     Dates: start: 20170313
  16. FORLAX [Suspect]
     Active Substance: POLYETHYLENE GLYCOL 4000
     Dosage: BIOGARAN, DURATION; 6 MONTHS 7 DAYS
     Route: 064
     Dates: start: 20160930, end: 20170405
  17. METFORMIN HYDROCHLORIDE. [Suspect]
     Active Substance: METFORMIN HYDROCHLORIDE
     Dosage: DURATION: 4 MONTHS 26 DAYS
     Route: 064
     Dates: start: 20160930, end: 20170224
  18. AMOXICILLIN. [Suspect]
     Active Substance: AMOXICILLIN
     Route: 064
     Dates: start: 20170804, end: 20170804
  19. GABAPENTIN. [Suspect]
     Active Substance: GABAPENTIN
     Indication: DIABETIC NEUROPATHY
     Route: 064
     Dates: start: 20160930
  20. FUROSEMIDE. [Suspect]
     Active Substance: FUROSEMIDE
     Indication: HYPERTENSION
     Route: 064
     Dates: start: 20170516
  21. PROPRANOLOL HYDROCHLORIDE. [Suspect]
     Active Substance: PROPRANOLOL HYDROCHLORIDE
     Route: 064
     Dates: start: 20170720
  22. CALCIUM FOLINATE [Suspect]
     Active Substance: LEUCOVORIN CALCIUM
     Indication: NORMOCHROMIC NORMOCYTIC ANAEMIA
     Route: 064
     Dates: start: 20170224, end: 20170313
  23. METFORMIN HYDROCHLORIDE. [Suspect]
     Active Substance: METFORMIN HYDROCHLORIDE
     Route: 064
     Dates: start: 20170224
  24. LABETALOL HYDROCHLORIDE. [Suspect]
     Active Substance: LABETALOL HYDROCHLORIDE
     Indication: HYPERTENSION
     Dosage: DURATION : 3 MONTHS 30 DAYS
     Route: 064
     Dates: start: 20170516, end: 20170914
  25. TARDYFERON [Suspect]
     Active Substance: FERROUS SULFATE
     Indication: NORMOCHROMIC NORMOCYTIC ANAEMIA
     Dosage: DURATION: 6 MONTHS 2 DAYS
     Route: 064
     Dates: start: 20170313, end: 20170914
  26. ARIPIPRAZOLE. [Suspect]
     Active Substance: ARIPIPRAZOLE
     Indication: BIPOLAR I DISORDER
     Dosage: DURATION:4 MONTHS 26 DAYS
     Route: 064
     Dates: start: 20160930, end: 20170224
  27. FOLIC ACID. [Suspect]
     Active Substance: FOLIC ACID
     Indication: NORMOCHROMIC NORMOCYTIC ANAEMIA
     Dosage: DURATION: 6 MONTHS 2 DAYS
     Route: 064
     Dates: start: 20170313, end: 20170914
  28. DIFFU K [Suspect]
     Active Substance: POTASSIUM CHLORIDE
     Indication: HYPOKALAEMIA
     Dosage: QD (2 TO 3 TIMES PER DAY)
     Route: 064
     Dates: start: 20170804
  29. LAROXYL [Suspect]
     Active Substance: AMITRIPTYLINE HYDROCHLORIDE
     Indication: DIABETIC NEUROPATHY
     Dosage: DURATION: 11 MONTHS 16 DAYS
     Route: 064
     Dates: start: 20160930, end: 20170914
  30. LOXEN L P [Suspect]
     Active Substance: NICARDIPINE HYDROCHLORIDE
     Indication: HYPERTENSION
     Dosage: DURATION: 5 MONTHS 10 DAYS
     Route: 064
     Dates: start: 20170405, end: 20170914
  31. RAMIPRIL. [Suspect]
     Active Substance: RAMIPRIL
     Indication: HYPERTENSION
     Dosage: DURATION 4 MONTHS 26 DAYS
     Route: 064
     Dates: start: 20160930, end: 20170224
  32. TRAMADOL HYDROCHLORIDE. [Suspect]
     Active Substance: TRAMADOL HYDROCHLORIDE
     Indication: DIABETIC NEUROPATHY
     Dosage: DURATION: 5 MONTHS 5 DAYS
     Route: 064
     Dates: start: 20160930, end: 20170306
  33. TRAMADOL HYDROCHLORIDE. [Suspect]
     Active Substance: TRAMADOL HYDROCHLORIDE
     Dosage: DURATION: 5 MONTHS 5 DAYS
     Route: 064
     Dates: start: 20160930, end: 20170306
  34. GABAPENTIN. [Suspect]
     Active Substance: GABAPENTIN
     Route: 064
     Dates: start: 20160930
  35. METHYLDOPA. [Suspect]
     Active Substance: METHYLDOPA
     Indication: HYPERTENSION
     Route: 064
     Dates: start: 20170720
  36. FOLINIC ACID [Suspect]
     Active Substance: LEUCOVORIN
     Route: 064
     Dates: start: 20170224, end: 20170313
  37. LARGACTIL [Suspect]
     Active Substance: CHLORPROMAZINE
     Indication: BIPOLAR I DISORDER
     Route: 064
     Dates: start: 20170720
  38. LARGACTIL [Suspect]
     Active Substance: CHLORPROMAZINE
     Route: 064
  39. HUMALOG [Suspect]
     Active Substance: INSULIN LISPRO
     Indication: TYPE 2 DIABETES MELLITUS
     Route: 064
     Dates: start: 20170224, end: 20170224
  40. FORLAX [Suspect]
     Active Substance: POLYETHYLENE GLYCOL 4000
     Indication: CONSTIPATION
     Dosage: DURATION 4 MONTHS 26 DAYS
     Route: 064
     Dates: start: 20160930, end: 20170224
  41. PROPRANOLOL HYDROCHLORIDE. [Suspect]
     Active Substance: PROPRANOLOL HYDROCHLORIDE
     Indication: HYPERTENSION
     Route: 064
     Dates: start: 20170516

REACTIONS (5)
  - Premature baby [Recovered/Resolved]
  - Neutropenia neonatal [Not Recovered/Not Resolved]
  - Foetal disorder [Unknown]
  - Low birth weight baby [Unknown]
  - Foetal exposure during pregnancy [Unknown]

NARRATIVE: CASE EVENT DATE: 2017
